FAERS Safety Report 8761499 (Version 3)
Quarter: 2013Q4

REPORT INFORMATION
  Report Type: Spontaneous
  Country: AU (occurrence: AU)
  Receive Date: 20120830
  Receipt Date: 20131031
  Transmission Date: 20140711
  Serious: Yes (Disabling, Other)
  Sender: FDA-Public Use
  Company Number: AU-MERCK-1110USA04417

PATIENT
  Age: 65 Year
  Sex: Female

DRUGS (10)
  1. SINEMET [Suspect]
     Indication: PARKINSON^S DISEASE
     Dosage: 1.5 DF, Q3H
     Route: 048
     Dates: start: 1996
  2. SINEMET [Suspect]
     Dosage: 1.5 TABLETS, 5 TIMES A DAY
     Route: 048
     Dates: start: 201111
  3. SINEMET [Suspect]
     Dosage: 1 DF, Q4H
     Route: 048
  4. SINEMET [Suspect]
     Dosage: 1 DF, Q3H
     Route: 048
  5. BETALOC [Concomitant]
     Indication: CARDIAC DISORDER
     Dosage: 50 MG, QD
  6. MICARDIS [Concomitant]
     Indication: CARDIAC DISORDER
     Dosage: 40 MG, QD
  7. CRESTOR [Concomitant]
     Indication: HYPOTHYROIDISM
     Dosage: 10 MG, QD
  8. OROXINE [Concomitant]
     Indication: HYPOTHYROIDISM
     Dosage: 100 MG, QD
  9. ASTRIX [Concomitant]
     Indication: PROPHYLAXIS
     Dosage: UNK UNK, QD
  10. SIFROL [Concomitant]
     Indication: PARKINSON^S DISEASE
     Dosage: 3 MG, QD
     Route: 048
     Dates: start: 2008

REACTIONS (6)
  - Drug ineffective [Not Recovered/Not Resolved]
  - Overdose [Unknown]
  - Dyskinesia [Not Recovered/Not Resolved]
  - Product physical issue [Unknown]
  - Parkinson^s disease [Recovered/Resolved]
  - Wrong technique in drug usage process [Unknown]
